FAERS Safety Report 8002638-1 (Version None)
Quarter: 2011Q4

REPORT INFORMATION
  Report Type: 
  Country: None (occurrence: None)
  Receive Date: 20111222
  Receipt Date: 20111216
  Transmission Date: 20120403
  Serious: Yes (Hospitalization)
  Sender: FDA-Public Use
  Company Number: JP-GLAXOSMITHKLINE-B0770233A

PATIENT
  Sex: Male

DRUGS (3)
  1. AMLODIPINE BESYLATE + TELMISARTAN [Concomitant]
     Indication: HYPERTENSION
     Route: 048
  2. FEBUXOSTAT [Concomitant]
     Indication: HYPERURICAEMIA
     Route: 048
  3. FLUTICASONE PROPIONATE/SALMETEROL [Suspect]
     Indication: ASTHMA
     Route: 055
     Dates: start: 20100101, end: 20111215

REACTIONS (2)
  - ERYTHEMA MULTIFORME [None]
  - PRURITUS [None]
